FAERS Safety Report 7686615-6 (Version None)
Quarter: 2011Q3

REPORT INFORMATION
  Report Type: 
  Country: None (occurrence: None)
  Receive Date: 20110816
  Receipt Date: 20110816
  Transmission Date: 20111222
  Serious: Yes (Other)
  Sender: FDA-Public Use
  Company Number: None

PATIENT
  Age: 9 Year
  Sex: Male
  Weight: 20.411 kg

DRUGS (1)
  1. VYVANSE [Suspect]
     Indication: ATTENTION DEFICIT/HYPERACTIVITY DISORDER
     Dosage: 50MG
     Route: 048
     Dates: start: 20090601, end: 20100301

REACTIONS (5)
  - PRODUCT SUBSTITUTION ISSUE [None]
  - AGGRESSION [None]
  - ANTISOCIAL PERSONALITY DISORDER [None]
  - PERSONALITY CHANGE [None]
  - ANGER [None]
